FAERS Safety Report 7189930-8 (Version None)
Quarter: 2010Q4

REPORT INFORMATION
  Report Type: 
  Country: None (occurrence: None)
  Receive Date: 20101223
  Receipt Date: 20101202
  Transmission Date: 20110411
  Serious: Yes (Other)
  Sender: FDA-Public Use
  Company Number: US-PFIZER INC-2010163069

PATIENT
  Sex: Female
  Weight: 122.45 kg

DRUGS (4)
  1. CELEBREX [Suspect]
     Indication: ARTHRITIS
     Dosage: 200 MG, 1X/DAY
     Route: 048
     Dates: end: 20101124
  2. VOLTAREN [Suspect]
     Dosage: UNK
  3. VALSARTAN [Concomitant]
     Indication: HYPERTENSION
     Dosage: 320 MG, 1X/DAY
  4. FUROSEMIDE [Concomitant]
     Indication: DIURETIC THERAPY
     Dosage: 20 MG, 1X/DAY

REACTIONS (6)
  - COUGH [None]
  - DYSPNOEA [None]
  - FLUID RETENTION [None]
  - HYPERSENSITIVITY [None]
  - SPEECH DISORDER [None]
  - WEIGHT INCREASED [None]
